FAERS Safety Report 7137628-4 (Version None)
Quarter: 2010Q4

REPORT INFORMATION
  Report Type: 
  Country: None (occurrence: None)
  Receive Date: 20101119
  Receipt Date: 20101109
  Transmission Date: 20110411
  Serious: Yes (Death)
  Sender: FDA-Public Use
  Company Number: MC201000350

PATIENT

DRUGS (3)
  1. ANGIOMAX [Suspect]
     Indication: ACUTE MYOCARDIAL INFARCTION
     Dosage: 0.1 MG/KG, BOLUS, INTRAVENOUS, 0.26 MG/KG, HR, INTRAVENOUS
     Route: 040
  2. ASPIRIN [Concomitant]
  3. CLOPIDOGREL [Concomitant]

REACTIONS (1)
  - CARDIAC FAILURE [None]
